FAERS Safety Report 5357897-0 (Version None)
Quarter: 2007Q2

REPORT INFORMATION
  Report Type: 
  Country: None (occurrence: None)
  Receive Date: 20070612
  Receipt Date: 20070604
  Transmission Date: 20071010
  Serious: Yes (Other)
  Sender: FDA-Public Use
  Company Number: 2217-140

PATIENT
  Age: 53 Year
  Sex: Male

DRUGS (2)
  1. TRIAMCINOLONE [Suspect]
     Indication: NECK PAIN
     Dosage: 0.75  ONCE
  2. BUPIVACAINE [Concomitant]

REACTIONS (4)
  - ASTHENIA [None]
  - PARAESTHESIA [None]
  - QUADRIPLEGIA [None]
  - SPINAL CORD INFARCTION [None]
